FAERS Safety Report 17332459 (Version 1)
Quarter: 2020Q1

REPORT INFORMATION
  Report Type: Spontaneous
  Country: US (occurrence: US)
  Receive Date: 20200124
  Receipt Date: 20200124
  Transmission Date: 20200409
  Serious: Yes (Other)
  Sender: FDA-Public Use
  Company Number: None

PATIENT
  Age: 48 Year
  Sex: Female
  Weight: 72 kg

DRUGS (6)
  1. GI COCKTAIL: VISCOUS LIDOCAINE MIXED WITH MYLANTA [Suspect]
     Active Substance: ALUMINUM HYDROXIDE\DIMETHICONE\LIDOCAINE\MAGNESIUM HYDROXIDE
     Indication: GASTROOESOPHAGEAL REFLUX DISEASE
     Dosage: ?          OTHER FREQUENCY:1 DOSE;?
     Route: 048
  2. CORTEFF [Concomitant]
  3. TUMS [Concomitant]
     Active Substance: CALCIUM CARBONATE
  4. SYNTHROID [Concomitant]
     Active Substance: LEVOTHYROXINE SODIUM
  5. VITAMIN C [Concomitant]
     Active Substance: ASCORBIC ACID
  6. VIT D [Concomitant]
     Active Substance: VITAMIN D NOS

REACTIONS (5)
  - Gait inability [None]
  - Nasopharyngitis [None]
  - Vomiting [None]
  - Head titubation [None]
  - Tremor [None]

NARRATIVE: CASE EVENT DATE: 20200107
